FAERS Safety Report 23873299 (Version 1)
Quarter: 2024Q2

REPORT INFORMATION
  Report Type: Report from Study
  Country: US (occurrence: US)
  Receive Date: 20240520
  Receipt Date: 20240520
  Transmission Date: 20240715
  Serious: Yes (Hospitalization, Other)
  Sender: FDA-Public Use
  Company Number: US-GILEAD-2024-0672994

PATIENT
  Age: 57 Year
  Sex: Male

DRUGS (1)
  1. EMTRICITABINE\RILPIVIRINE HYDROCHLORIDE\TENOFOVIR ALAFENAMIDE FUMARATE [Suspect]
     Active Substance: EMTRICITABINE\RILPIVIRINE HYDROCHLORIDE\TENOFOVIR ALAFENAMIDE FUMARATE
     Indication: HIV infection
     Dosage: 250 MG, QD
     Route: 048

REACTIONS (4)
  - Cartilage injury [Recovered/Resolved]
  - Neck injury [Recovered/Resolved]
  - Benign neoplasm [Recovered/Resolved]
  - Product dose omission issue [Not Recovered/Not Resolved]

NARRATIVE: CASE EVENT DATE: 20231213
